FAERS Safety Report 6436769-4 (Version None)
Quarter: 2009Q4

REPORT INFORMATION
  Report Type: 
  Country: None (occurrence: None)
  Receive Date: 20091109
  Receipt Date: 20091102
  Transmission Date: 20100525
  Serious: Yes (Other)
  Sender: FDA-Public Use
  Company Number: 09US004790

PATIENT
  Age: 13 Year
  Sex: Female
  Weight: 45.4 kg

DRUGS (1)
  1. ACETAMINOPHEN [Suspect]
     Indication: INTENTIONAL OVERDOSE
     Dosage: 25000 MG, SINGLE, ORAL
     Route: 048
     Dates: start: 20091102, end: 20091102

REACTIONS (1)
  - INTENTIONAL OVERDOSE [None]
